FAERS Safety Report 6277797-1 (Version None)
Quarter: 2009Q3

REPORT INFORMATION
  Report Type: 
  Country: None (occurrence: None)
  Receive Date: 20090722
  Receipt Date: 20090710
  Transmission Date: 20100115
  Serious: Yes (Other)
  Sender: FDA-Public Use
  Company Number: DE-ELI_LILLY_AND_COMPANY-DE200907002254

PATIENT
  Sex: Male

DRUGS (2)
  1. STRATTERA [Suspect]
     Indication: ATTENTION DEFICIT/HYPERACTIVITY DISORDER
     Dosage: 40 MG, DAILY (1/D)
     Route: 048
     Dates: start: 20050512, end: 20090206
  2. DIPIPERON [Concomitant]
     Dosage: 40 MG, DAILY (1/D)
     Route: 065
     Dates: start: 20080313

REACTIONS (1)
  - SUDDEN HEARING LOSS [None]
